FAERS Safety Report 16922990 (Version 2)
Quarter: 2019Q4

REPORT INFORMATION
  Report Type: Spontaneous
  Country: ZA (occurrence: ZA)
  Receive Date: 20191016
  Receipt Date: 20191021
  Transmission Date: 20200122
  Serious: Yes (Death)
  Sender: FDA-Public Use
  Company Number: ZA-TEVA-2019-ZA-1083982

PATIENT
  Age: 71 Year
  Sex: Female

DRUGS (3)
  1. LEVOFLOXACIN. [Suspect]
     Active Substance: LEVOFLOXACIN
     Indication: TUBERCULOSIS
     Route: 065
  2. KANAMYCIN [Suspect]
     Active Substance: KANAMYCIN A SULFATE
     Indication: TUBERCULOSIS
     Route: 065
  3. BEDAQUILINE [Concomitant]
     Active Substance: BEDAQUILINE
     Indication: TUBERCULOSIS
     Route: 065

REACTIONS (3)
  - Diarrhoea [Fatal]
  - Renal failure [Fatal]
  - Clostridium difficile colitis [Fatal]
